FAERS Safety Report 6282268-2 (Version None)
Quarter: 2009Q3

REPORT INFORMATION
  Report Type: 
  Country: None (occurrence: None)
  Receive Date: 20090724
  Receipt Date: 20090715
  Transmission Date: 20100115
  Serious: Yes (Death)
  Sender: FDA-Public Use
  Company Number: CA-BAXTER-2009BH010772

PATIENT
  Age: 67 Year
  Sex: Male

DRUGS (10)
  1. ADVATE [Suspect]
     Indication: HAEMOPHILIA
     Route: 065
  2. ADVATE [Suspect]
     Route: 065
     Dates: start: 20090504, end: 20090504
  3. ADVATE [Suspect]
     Route: 065
     Dates: start: 20090504, end: 20090504
  4. ADVATE [Suspect]
     Route: 065
     Dates: start: 20090504, end: 20090504
  5. ADVATE [Suspect]
     Route: 065
     Dates: start: 20090504, end: 20090507
  6. ADVATE [Suspect]
     Route: 065
     Dates: start: 20090504, end: 20090507
  7. ADVATE [Suspect]
     Route: 065
     Dates: start: 20090504, end: 20090507
  8. ADVATE [Suspect]
     Route: 065
     Dates: start: 20090504, end: 20090507
  9. ADVATE [Suspect]
     Route: 065
     Dates: start: 20090504, end: 20090507
  10. ADVATE [Suspect]
     Route: 065
     Dates: start: 20090504, end: 20090507

REACTIONS (1)
  - HAEMORRHAGE [None]
